FAERS Safety Report 14772384 (Version 1)
Quarter: 2018Q2

REPORT INFORMATION
  Report Type: Spontaneous
  Country: IT (occurrence: IT)
  Receive Date: 20180418
  Receipt Date: 20180418
  Transmission Date: 20180711
  Serious: Yes (Other)
  Sender: FDA-Public Use
  Company Number: IT-JNJFOC-20180404873

PATIENT
  Age: 23 Year
  Sex: Female

DRUGS (4)
  1. MEFENAMIC ACID. [Suspect]
     Active Substance: MEFENAMIC ACID
     Indication: DRUG ABUSE
     Dosage: ; IN TOTAL
     Route: 048
     Dates: start: 20170628, end: 20170628
  2. IBUPROFEN. [Suspect]
     Active Substance: IBUPROFEN
     Route: 048
  3. IBUPROFEN. [Suspect]
     Active Substance: IBUPROFEN
     Indication: DRUG ABUSE
     Dosage: ; IN TOTAL
     Route: 048
     Dates: start: 20170628, end: 20170628
  4. NAPROXEN SODIUM. [Suspect]
     Active Substance: NAPROXEN SODIUM
     Indication: DRUG ABUSE
     Dosage: ; IN TOTAL
     Route: 048
     Dates: start: 20170628, end: 20170628

REACTIONS (2)
  - Drug abuse [Not Recovered/Not Resolved]
  - Oedema peripheral [Not Recovered/Not Resolved]

NARRATIVE: CASE EVENT DATE: 20170628
